FAERS Safety Report 8581857-X (Version None)
Quarter: 2012Q3

REPORT INFORMATION
  Report Type: 
  Country: None (occurrence: None)
  Receive Date: 20120809
  Receipt Date: 20070226
  Transmission Date: 20120928
  Serious: Yes (Death)
  Sender: FDA-Public Use
  Company Number: CO-PFIZER INC-2012190489

PATIENT
  Age: 69 Year
  Sex: Male

DRUGS (6)
  1. METOPROLOL TARTRATE [Concomitant]
     Dosage: 50 MG, TWICE DAILY
  2. METOPROLOL TARTRATE [Concomitant]
     Dosage: 100 MG, TWICE DAILY
  3. QUINAPRIL AND HYDROCHLOROTHIAZIDE [Suspect]
     Indication: HYPERTENSION
     Dosage: [QUINAPRIL HCL 20 MG]/ [HYDROCHLOROTHIAZIDE 12.5 MG] 1 DF, ONCE DAILY
  4. LIPITOR [Suspect]
     Indication: DYSLIPIDAEMIA
     Dosage: 10 MG, ONCE DAILY
  5. ISOSORBIDE DINITRATE [Concomitant]
     Dosage: 10 MG, THREE TIMES DAILY
  6. OLMESARTAN MEDOXOMIL AND HYDROCHLOROTHIZIDE [Suspect]
     Indication: HYPERTENSION
     Dosage: [OLMESARTAN MEDOXOMIL 20 MG]/ [HYDROCHLOROTHIAZIDE 12.5MG] 1 DF ONCE DAILY

REACTIONS (3)
  - HEADACHE [None]
  - DEATH [None]
  - DYSPNOEA [None]
